FAERS Safety Report 22276273 (Version 1)
Quarter: 2023Q2

REPORT INFORMATION
  Report Type: Spontaneous
  Country: RU (occurrence: None)
  Receive Date: 20230502
  Receipt Date: 20230502
  Transmission Date: 20230721
  Serious: Yes (Death)
  Sender: FDA-Public Use
  Company Number: RU-ROCHE-3341153

PATIENT
  Age: 61 Year
  Sex: Male

DRUGS (3)
  1. ATEZOLIZUMAB [Suspect]
     Active Substance: ATEZOLIZUMAB
     Indication: Small cell lung cancer
     Dosage: UNTIL APR/2022, SYSTEMIC 1ST LINE THERAPY WITH EC+ATEZOLIZUMAB?UNTIL JUL/2022, ATEZOLIZUMAB IN MAINT
     Route: 065
     Dates: start: 202111
  2. CARBOPLATIN [Suspect]
     Active Substance: CARBOPLATIN
     Indication: Small cell lung cancer
     Dosage: UNTIL APR/2022, SYSTEMIC 1ST LINE THERAPY WITH EC+ATEZOLIZUMAB?UNTIL JUL/2022, ATEZOLIZUMAB IN MAINT
     Route: 065
     Dates: start: 202111
  3. ETOPOSIDE [Suspect]
     Active Substance: ETOPOSIDE
     Indication: Small cell lung cancer
     Dosage: UNTIL APR/2022, SYSTEMIC 1ST LINE THERAPY WITH EC+ATEZOLIZUMAB?UNTIL JUL/2022, ATEZOLIZUMAB IN MAINT
     Route: 065
     Dates: start: 202111

REACTIONS (7)
  - Metastases to central nervous system [Fatal]
  - Rash [Unknown]
  - Pruritus [Unknown]
  - Erythema [Unknown]
  - Skin toxicity [Unknown]
  - Cough [Unknown]
  - Dermatitis bullous [Unknown]

NARRATIVE: CASE EVENT DATE: 20220801
